FAERS Safety Report 10741207 (Version 2)
Quarter: 2015Q1

REPORT INFORMATION
  Report Type: Spontaneous
  Country: NL (occurrence: NL)
  Receive Date: 20150127
  Receipt Date: 20150209
  Transmission Date: 20150721
  Serious: Yes (Death)
  Sender: FDA-Public Use
  Company Number: NL-TEVA-535961ISR

PATIENT
  Age: 74 Year
  Sex: Female
  Weight: 73 kg

DRUGS (5)
  1. RISEDRONAATNATRIUM AUROBINDO 35MG [Concomitant]
     Route: 048
  2. FOLIUMZUUR TABLET 5MG [Concomitant]
     Active Substance: FOLIC ACID
     Route: 048
  3. OMEPRAZOL CAPSULE MSR 20MG [Concomitant]
     Active Substance: OMEPRAZOLE
     Dosage: 20 MILLIGRAM DAILY; ONCE DAILY ONE PIECE
     Route: 048
     Dates: start: 20070723
  4. PREDNISOLON TABLET 5MG [Concomitant]
     Dosage: 7.5 MILLIGRAM DAILY; ONCE DAILY 1.5 PIECE
     Route: 048
     Dates: start: 20070709
  5. METHOTREXATE (METHOTREXATE SODIUM) [Suspect]
     Active Substance: METHOTREXATE SODIUM
     Indication: RHEUMATOID ARTHRITIS
     Dosage: ONCE DAILY 6 PIECES
     Route: 048
     Dates: start: 20141111, end: 20141118

REACTIONS (3)
  - Dyspnoea [Fatal]
  - Cough [Fatal]
  - Pulmonary embolism [Fatal]

NARRATIVE: CASE EVENT DATE: 20150113
